FAERS Safety Report 7557795-8 (Version None)
Quarter: 2011Q2

REPORT INFORMATION
  Report Type: 
  Country: None (occurrence: None)
  Receive Date: 20110620
  Receipt Date: 20110613
  Transmission Date: 20111010
  Serious: Yes (Hospitalization)
  Sender: FDA-Public Use
  Company Number: IN-BRISTOL-MYERS SQUIBB COMPANY-14630164

PATIENT
  Age: 66 Year
  Sex: Female

DRUGS (6)
  1. ATORVASTATIN [Concomitant]
     Dates: start: 20071201
  2. TORSEMIDE [Concomitant]
     Dates: start: 20080701
  3. PRAZOSIN HCL [Concomitant]
     Dates: start: 20071210
  4. PLACEBO [Suspect]
     Indication: THROMBOSIS PROPHYLAXIS
     Dosage: STOPPED 15APR09,RESTARTED ON 05JUN09
     Route: 048
     Dates: start: 20071222
  5. WARFARIN SODIUM [Suspect]
     Indication: THROMBOSIS PROPHYLAXIS
     Dosage: STOPPED 15APR09,RESTARTED ON 05JUN09(2MG)
     Route: 048
     Dates: start: 20071222
  6. VERPAMIL HCL [Concomitant]
     Dates: start: 20071210

REACTIONS (1)
  - GASTROENTERITIS SHIGELLA [None]
